FAERS Safety Report 17400984 (Version 1)
Quarter: 2020Q1

REPORT INFORMATION
  Report Type: Spontaneous
  Country: US (occurrence: US)
  Receive Date: 20200127
  Receipt Date: 20200127
  Transmission Date: 20200409
  Serious: No
  Sender: FDA-Public Use
  Company Number: None

PATIENT
  Age: 9 Year
  Sex: Female

DRUGS (1)
  1. PENNEEDLE  UF III 31GX5/16 [Suspect]
     Active Substance: DEVICE
     Indication: BODY HEIGHT BELOW NORMAL
     Route: 058
     Dates: start: 20190124

REACTIONS (3)
  - Needle issue [None]
  - Product packaging quantity issue [None]
  - Wrong technique in product usage process [None]

NARRATIVE: CASE EVENT DATE: 20200127
